FAERS Safety Report 5086140-5 (Version None)
Quarter: 2006Q3

REPORT INFORMATION
  Report Type: 
  Country: None (occurrence: None)
  Receive Date: 20060818
  Receipt Date: 20060808
  Transmission Date: 20061208
  Serious: Yes (Hospitalization, Other)
  Sender: FDA-Public Use
  Company Number: 2006090243

PATIENT
  Age: 53 Year
  Sex: Female

DRUGS (7)
  1. LYRICA [Suspect]
     Indication: DYSAESTHESIA
     Dosage: 600 MG (300 MG, 2 IN 1 D),O RAL
     Route: 048
     Dates: start: 20060412
  2. ALL OTHER THERAPEUTIC [Suspect]
  3. ZYDOL-SLOW RELEASE (TRAMADOL HYDROCHLORIDE) [Concomitant]
  4. MST (MORPHINE SULFATE) [Concomitant]
  5. DALMANE [Concomitant]
  6. XANAX [Concomitant]
  7. KAPAKE         (CODEINE PHOSPHATE, PARACETAMOL) [Concomitant]

REACTIONS (3)
  - CONFUSIONAL STATE [None]
  - OVERDOSE [None]
  - RESPIRATORY DISTRESS [None]
